FAERS Safety Report 10081349 (Version 1)
Quarter: 2014Q2

REPORT INFORMATION
  Report Type: Spontaneous
  Country: US (occurrence: US)
  Receive Date: 20140416
  Receipt Date: 20140416
  Transmission Date: 20141212
  Serious: Yes (Other)
  Sender: FDA-Public Use
  Company Number: US-ROCHE-1377715

PATIENT
  Sex: Male

DRUGS (7)
  1. PEGASYS [Suspect]
     Indication: CHRONIC HEPATITIS C
     Dosage: PFS
     Route: 058
     Dates: start: 20140403
  2. PEGASYS [Suspect]
     Route: 058
     Dates: start: 2009
  3. RIBAVIRIN [Suspect]
     Indication: CHRONIC HEPATITIS C
     Route: 065
     Dates: start: 2009
  4. AMBIEN [Concomitant]
     Indication: INSOMNIA
  5. INCIVEK [Concomitant]
  6. RIBASPHERE [Concomitant]
     Indication: CHRONIC HEPATITIS C
     Dosage: IN DIVIDED DOSES 600/600
     Route: 065
     Dates: start: 20140403
  7. SOVALDI [Concomitant]
     Indication: CHRONIC HEPATITIS C
     Route: 065
     Dates: start: 20140403

REACTIONS (3)
  - Lymphoma [Unknown]
  - Drug ineffective [Unknown]
  - Viral load increased [Unknown]
